FAERS Safety Report 5973871-5 (Version None)
Quarter: 2008Q4

REPORT INFORMATION
  Report Type: 
  Country: None (occurrence: None)
  Receive Date: 20081201
  Receipt Date: 20080922
  Transmission Date: 20090506
  Serious: No
  Sender: FDA-Public Use
  Company Number: US-AMGEN-KDL304514

PATIENT
  Sex: Female

DRUGS (1)
  1. ENBREL [Suspect]
     Indication: PSORIASIS
     Route: 058
     Dates: start: 20050101

REACTIONS (6)
  - AGEUSIA [None]
  - ANOSMIA [None]
  - BRONCHITIS [None]
  - MULTIPLE ALLERGIES [None]
  - PSORIASIS [None]
  - SINUSITIS [None]
